FAERS Safety Report 19787209 (Version 1)
Quarter: 2021Q3

REPORT INFORMATION
  Report Type: Spontaneous
  Country: US (occurrence: US)
  Receive Date: 20210903
  Receipt Date: 20210903
  Transmission Date: 20211014
  Serious: Yes (Other)
  Sender: FDA-Public Use
  Company Number: US-PFIZER INC-202101090091

PATIENT
  Sex: Female

DRUGS (2)
  1. GABAPENTIN. [Suspect]
     Active Substance: GABAPENTIN
     Indication: ANXIETY
     Dosage: 100 MG ( FOR 1 WEEK )
  2. GABAPENTIN. [Suspect]
     Active Substance: GABAPENTIN
     Dosage: 100 MG, ALTERNATE DAY (2 MORE DOSES)

REACTIONS (16)
  - Insomnia [Unknown]
  - Pyrexia [Unknown]
  - Hallucination, visual [Unknown]
  - Off label use [Unknown]
  - Hypersensitivity [Unknown]
  - Restlessness [Unknown]
  - Swollen tongue [Unknown]
  - Vision blurred [Unknown]
  - Feeling hot [Unknown]
  - Hypoaesthesia [Unknown]
  - Discomfort [Unknown]
  - Decreased appetite [Unknown]
  - Palpitations [Unknown]
  - Tachycardia [Unknown]
  - Sensory disturbance [Unknown]
  - Temperature regulation disorder [Unknown]
